FAERS Safety Report 7065482-8 (Version None)
Quarter: 2010Q4

REPORT INFORMATION
  Report Type: 
  Country: None (occurrence: None)
  Receive Date: 20101027
  Receipt Date: 20101025
  Transmission Date: 20110411
  Serious: No
  Sender: FDA-Public Use
  Company Number: US-PFIZER INC-2010121268

PATIENT
  Sex: Male
  Weight: 74.83 kg

DRUGS (4)
  1. ALPRAZOLAM [Suspect]
     Indication: PANIC ATTACK
     Dosage: 2 MG, 3X/DAY
     Route: 048
  2. ALPRAZOLAM [Suspect]
     Indication: ANXIETY
  3. LISDEXAMFETAMINE DIMESYLATE [Concomitant]
     Dates: start: 20080926
  4. SEROQUEL [Concomitant]
     Dates: start: 20080107

REACTIONS (1)
  - DRUG INEFFECTIVE [None]
